FAERS Safety Report 20197628 (Version 1)
Quarter: 2021Q4

REPORT INFORMATION
  Report Type: Spontaneous
  Country: GB (occurrence: GB)
  Receive Date: 20211217
  Receipt Date: 20211217
  Transmission Date: 20220303
  Serious: Yes (Other)
  Sender: FDA-Public Use
  Company Number: None

PATIENT
  Age: 40 Year

DRUGS (1)
  1. TRIMETHOPRIM [Suspect]
     Active Substance: TRIMETHOPRIM
     Indication: Urinary tract infection
     Route: 048
     Dates: start: 20211125, end: 20211126

REACTIONS (2)
  - Swelling face [Recovering/Resolving]
  - Eye inflammation [Recovering/Resolving]

NARRATIVE: CASE EVENT DATE: 20211126
